FAERS Safety Report 18367009 (Version 5)
Quarter: 2022Q3

REPORT INFORMATION
  Report Type: Spontaneous
  Country: US (occurrence: None)
  Receive Date: 20201009
  Receipt Date: 20220930
  Transmission Date: 20221027
  Serious: Yes (Hospitalization, Other)
  Sender: FDA-Public Use
  Company Number: 2020SF27891

PATIENT
  Age: 21564 Day
  Sex: Male
  Weight: 98 kg

DRUGS (54)
  1. FARXIGA [Suspect]
     Active Substance: DAPAGLIFLOZIN PROPANEDIOL
     Indication: Type 2 diabetes mellitus
     Route: 048
     Dates: start: 20170608, end: 201801
  2. FARXIGA [Suspect]
     Active Substance: DAPAGLIFLOZIN PROPANEDIOL
     Indication: Weight decreased
     Route: 048
     Dates: start: 20170608, end: 201801
  3. FARXIGA [Suspect]
     Active Substance: DAPAGLIFLOZIN PROPANEDIOL
     Indication: Blood pressure decreased
     Route: 048
     Dates: start: 20170608, end: 201801
  4. FARXIGA [Suspect]
     Active Substance: DAPAGLIFLOZIN PROPANEDIOL
     Indication: Type 2 diabetes mellitus
     Route: 048
     Dates: start: 20170709
  5. FARXIGA [Suspect]
     Active Substance: DAPAGLIFLOZIN PROPANEDIOL
     Indication: Weight decreased
     Route: 048
     Dates: start: 20170709
  6. FARXIGA [Suspect]
     Active Substance: DAPAGLIFLOZIN PROPANEDIOL
     Indication: Blood pressure decreased
     Route: 048
     Dates: start: 20170709
  7. VIAGRA [Concomitant]
     Active Substance: SILDENAFIL CITRATE
  8. IBUPROFEN [Concomitant]
     Active Substance: IBUPROFEN
  9. PERCOCET [Concomitant]
     Active Substance: ACETAMINOPHEN\OXYCODONE HYDROCHLORIDE
  10. CIPRO [Concomitant]
     Active Substance: CIPROFLOXACIN HYDROCHLORIDE
  11. AUGMENTIN [Concomitant]
     Active Substance: AMOXICILLIN\CLAVULANATE POTASSIUM
  12. COLACE [Concomitant]
     Active Substance: DOCUSATE SODIUM
  13. DEXTROSE [Concomitant]
     Active Substance: DEXTROSE
  14. FLAGYL [Concomitant]
     Active Substance: METRONIDAZOLE\METRONIDAZOLE HYDROCHLORIDE
  15. NARCAN [Concomitant]
     Active Substance: NALOXONE HYDROCHLORIDE
  16. NOVOLOG [Concomitant]
     Active Substance: INSULIN ASPART
  17. PHENERGAN [Concomitant]
     Active Substance: PROMETHAZINE HYDROCHLORIDE
  18. RESTORIL [Concomitant]
     Active Substance: TEMAZEPAM
  19. ZOFRAN [Concomitant]
     Active Substance: ONDANSETRON HYDROCHLORIDE
  20. ZOSYN [Concomitant]
     Active Substance: PIPERACILLIN SODIUM\TAZOBACTAM SODIUM
  21. LISINOPRIL [Concomitant]
     Active Substance: LISINOPRIL
  22. METOPROLOL [Concomitant]
     Active Substance: METOPROLOL
  23. MORPHINE [Concomitant]
     Active Substance: MORPHINE
  24. OXYCODONE [Concomitant]
     Active Substance: OXYCODONE
  25. DIGOXIN [Concomitant]
     Active Substance: DIGOXIN
  26. DILTIAZEM [Concomitant]
     Active Substance: DILTIAZEM
  27. ENOXAPARIN [Concomitant]
     Active Substance: ENOXAPARIN
  28. FAMOTIDINE [Concomitant]
     Active Substance: FAMOTIDINE
  29. HYDROMORPHONE [Concomitant]
     Active Substance: HYDROMORPHONE
  30. ONDANSETRON [Concomitant]
     Active Substance: ONDANSETRON
  31. PIPERACILLIN [Concomitant]
     Active Substance: PIPERACILLIN
  32. POTASSIUM CHLORIDE [Concomitant]
     Active Substance: POTASSIUM CHLORIDE
  33. SODIUM CHLORIDE [Concomitant]
     Active Substance: SODIUM CHLORIDE
  34. ACETAMINOPHEN [Concomitant]
     Active Substance: ACETAMINOPHEN
  35. CYCLOBENZAPRINE HYDROCHLORIDE [Concomitant]
     Active Substance: CYCLOBENZAPRINE HYDROCHLORIDE
  36. TRAMADOL HCL [Concomitant]
     Active Substance: TRAMADOL HYDROCHLORIDE
  37. METOPROLOL SUCCINATE [Concomitant]
     Active Substance: METOPROLOL SUCCINATE
  38. PRADAXA [Concomitant]
     Active Substance: DABIGATRAN ETEXILATE MESYLATE
  39. VANCOMYCIN [Concomitant]
     Active Substance: VANCOMYCIN
  40. CELECOXIB [Concomitant]
     Active Substance: CELECOXIB
  41. SUGAMMADEX [Concomitant]
     Active Substance: SUGAMMADEX
  42. ROCURONIUM [Concomitant]
     Active Substance: ROCURONIUM BROMIDE
  43. METHOCARBAMOL [Concomitant]
     Active Substance: METHOCARBAMOL
  44. TRIAMCINOLONE [Concomitant]
     Active Substance: TRIAMCINOLONE
  45. METOPROLOL TARTRATE [Concomitant]
     Active Substance: METOPROLOL TARTRATE
  46. OXYCODONE AND ACETAMINOPHEN [Concomitant]
     Active Substance: ACETAMINOPHEN\OXYCODONE HYDROCHLORIDE
  47. VITAMIN D [Concomitant]
     Active Substance: VITAMIN D NOS
  48. HYDROCHLOROTHIAZIDE\LISINOPRIL [Concomitant]
     Active Substance: HYDROCHLOROTHIAZIDE\LISINOPRIL
  49. FISH OIL [Concomitant]
     Active Substance: FISH OIL
  50. ADVIL [Concomitant]
     Active Substance: IBUPROFEN
  51. METFORMIN [Concomitant]
     Active Substance: METFORMIN HYDROCHLORIDE
  52. XARELTO [Concomitant]
     Active Substance: RIVAROXABAN
  53. ENTRESTO [Concomitant]
     Active Substance: SACUBITRIL\VALSARTAN
  54. ASPIRIN [Concomitant]
     Active Substance: ASPIRIN

REACTIONS (17)
  - Fournier^s gangrene [Unknown]
  - Sepsis [Unknown]
  - Rectal abscess [Unknown]
  - Groin abscess [Unknown]
  - Necrotising fasciitis [Unknown]
  - Anal abscess [Unknown]
  - Perirectal abscess [Unknown]
  - Cellulitis [Unknown]
  - Scrotal cellulitis [Unknown]
  - Perineal abscess [Unknown]
  - Abscess [Unknown]
  - Leukocytosis [Unknown]
  - Chronic kidney disease [Unknown]
  - Renal failure [Unknown]
  - Scrotal abscess [Unknown]
  - Scrotal erythema [Unknown]
  - Osteonecrosis [Unknown]

NARRATIVE: CASE EVENT DATE: 20170709
